FAERS Safety Report 21666320 (Version 4)
Quarter: 2025Q3

REPORT INFORMATION
  Report Type: Report from Study
  Country: US (occurrence: US)
  Receive Date: 20221201
  Receipt Date: 20250904
  Transmission Date: 20251021
  Serious: Yes (Other)
  Sender: TAKEDA
  Company Number: US-TAKEDA-US202019841

PATIENT
  Age: 29 Year
  Sex: Female

DRUGS (8)
  1. LANADELUMAB [Suspect]
     Active Substance: LANADELUMAB
     Indication: Immune system disorder
     Dosage: 300 MILLIGRAM, Q2WEEKS
     Dates: start: 201901
  2. LANADELUMAB [Suspect]
     Active Substance: LANADELUMAB
     Dosage: 300 MILLIGRAM, Q2WEEKS
     Dates: start: 20190107
  3. LANADELUMAB [Suspect]
     Active Substance: LANADELUMAB
     Dosage: 300 MILLIGRAM, Q2WEEKS
     Dates: start: 20190108
  4. LANADELUMAB [Suspect]
     Active Substance: LANADELUMAB
     Dosage: 300 MILLIGRAM, Q2WEEKS
     Dates: start: 201909
  5. LANADELUMAB [Suspect]
     Active Substance: LANADELUMAB
     Dosage: 300 MILLIGRAM, Q2WEEKS
     Dates: start: 201912
  6. LANADELUMAB [Suspect]
     Active Substance: LANADELUMAB
     Dosage: 300 MILLIGRAM/2 ML, Q2WEEKS
  7. FIRAZYR [Suspect]
     Active Substance: ICATIBANT ACETATE
     Indication: Immune system disorder
  8. FIRAZYR [Suspect]
     Active Substance: ICATIBANT ACETATE

REACTIONS (3)
  - COVID-19 [Unknown]
  - Product dose omission issue [Unknown]
  - Hereditary angioedema [Recovered/Resolved]

NARRATIVE: CASE EVENT DATE: 20200615
